FAERS Safety Report 6569628-7 (Version None)
Quarter: 2010Q1

REPORT INFORMATION
  Report Type: 
  Country: None (occurrence: None)
  Receive Date: 20100203
  Receipt Date: 20100203
  Transmission Date: 20100710
  Serious: Yes (Hospitalization)
  Sender: FDA-Public Use
  Company Number: None

PATIENT
  Sex: Female
  Weight: 90.6 kg

DRUGS (2)
  1. IFOSFAMIDE [Suspect]
     Indication: SARCOMA
     Dosage: 5490 MG Q24 HR X 5 DAYS CONTINUOUS INFUSION
     Dates: start: 20100126, end: 20100130
  2. IFOSFAMIDE [Suspect]
     Dosage: 5490 MG

REACTIONS (4)
  - CONFUSIONAL STATE [None]
  - LETHARGY [None]
  - MENTAL STATUS CHANGES [None]
  - SOMNOLENCE [None]
